FAERS Safety Report 11660723 (Version 1)
Quarter: 2015Q4

REPORT INFORMATION
  Report Type: Report from Study
  Country: US (occurrence: US)
  Receive Date: 20151026
  Receipt Date: 20151026
  Transmission Date: 20160304
  Serious: Yes (Hospitalization)
  Sender: FDA-Public Use
  Company Number: US-TARO-2015TAR00989

PATIENT
  Age: 72 Year
  Sex: Male
  Weight: 82.54 kg

DRUGS (13)
  1. NORCO [Concomitant]
     Active Substance: ACETAMINOPHEN\HYDROCODONE BITARTRATE
     Dosage: 10 MG, AS NEEDED
  2. ZYRTEC [Concomitant]
     Active Substance: CETIRIZINE HYDROCHLORIDE
     Dosage: 10 MG, UNK
     Route: 048
     Dates: start: 1990
  3. TRIAMCINOLONE ACETONIDE 1% CREAM [Concomitant]
     Dosage: UNK, 2X/DAY
     Route: 061
     Dates: start: 20150819
  4. ATORVASTATIN [Concomitant]
     Active Substance: ATORVASTATIN
     Dosage: 20 MG, 1X/DAY
     Route: 048
     Dates: start: 20141027
  5. DIPHENOXYLATE-ATROPINE [Concomitant]
     Dosage: UNK, AS NEEDED
     Route: 048
  6. NORCO [Concomitant]
     Active Substance: ACETAMINOPHEN\HYDROCODONE BITARTRATE
     Indication: NECK PAIN
     Dosage: 325 MG, AS NEEDED
  7. VITAMN D3 [Concomitant]
     Dosage: 1000 IU, 1X/DAY
     Route: 048
     Dates: start: 20131018
  8. SOLARAZE [Suspect]
     Active Substance: DICLOFENAC SODIUM
     Indication: ACTINIC KERATOSIS
     Dosage: UNK, 2X/DAY
     Route: 061
     Dates: start: 20150904
  9. CEFTIN [Concomitant]
     Active Substance: CEFUROXIME AXETIL
     Dosage: 500 MG, 2X/DAY
     Route: 048
     Dates: start: 20150608, end: 20150623
  10. BLINDED INTENT TO TREAT (DICLOFENAC SODIUM GEL 3% STUDY) [Suspect]
     Active Substance: DICLOFENAC SODIUM
     Indication: ACTINIC KERATOSIS
     Dosage: UNK, 2X/DAY
     Route: 061
     Dates: start: 20150904
  11. BLINDED DICLOFENAC SODIUM GEL [Suspect]
     Active Substance: DICLOFENAC SODIUM
     Indication: ACTINIC KERATOSIS
     Dosage: UNK, 2X/DAY
     Route: 061
     Dates: start: 20150904
  12. CARVEDILOL. [Concomitant]
     Active Substance: CARVEDILOL
     Dosage: 12.5 MG, 2X/DAY
     Route: 048
     Dates: start: 20100622
  13. MULTIVITAMINS [Concomitant]
     Active Substance: VITAMINS

REACTIONS (1)
  - Transient ischaemic attack [Recovered/Resolved]

NARRATIVE: CASE EVENT DATE: 20151006
